FAERS Safety Report 9343962 (Version 1)
Quarter: 2013Q2

REPORT INFORMATION
  Report Type: Spontaneous
  Country: NO (occurrence: NO)
  Receive Date: 20130612
  Receipt Date: 20130612
  Transmission Date: 20140414
  Serious: Yes (Hospitalization, Other)
  Sender: FDA-Public Use
  Company Number: NO-ROCHE-1231181

PATIENT
  Age: 49 Year
  Sex: Male

DRUGS (9)
  1. AVASTIN [Suspect]
     Indication: COLORECTAL CANCER METASTATIC
     Route: 065
     Dates: start: 20090317
  2. IRINOTECAN HYDROCHLORIDE TRIHYDRATE [Concomitant]
     Indication: COLORECTAL CANCER METASTATIC
     Route: 065
  3. FLUOROURACIL [Concomitant]
     Indication: COLORECTAL CANCER METASTATIC
     Route: 065
  4. CALCIUM FOLINATE [Concomitant]
     Indication: COLORECTAL CANCER METASTATIC
     Dosage: ON DAY 1 AND DAY 2
     Route: 065
  5. MEDROL [Concomitant]
     Route: 065
  6. DOLCONTIN [Concomitant]
  7. IMODIUM [Concomitant]
  8. GENTAMYCIN [Concomitant]
  9. IMACILLIN [Concomitant]
     Route: 048

REACTIONS (15)
  - Pyrexia [Recovered/Resolved]
  - Chills [Recovered/Resolved]
  - General physical health deterioration [Unknown]
  - Dehydration [Unknown]
  - Weight decreased [Unknown]
  - Neutropenia [Recovered/Resolved]
  - C-reactive protein increased [Recovered/Resolved]
  - Hypokalaemia [Unknown]
  - Diarrhoea haemorrhagic [Recovering/Resolving]
  - Bone marrow failure [Unknown]
  - Fatigue [Recovered/Resolved]
  - Fatigue [Recovered/Resolved]
  - Blood creatinine increased [Recovered/Resolved]
  - Dyspnoea [Recovered/Resolved]
  - Hypoaesthesia [Recovered/Resolved]
